FAERS Safety Report 7580627-9 (Version None)
Quarter: 2011Q2

REPORT INFORMATION
  Report Type: 
  Country: None (occurrence: None)
  Receive Date: 20110629
  Receipt Date: 20110620
  Transmission Date: 20111010
  Serious: Yes (Hospitalization)
  Sender: FDA-Public Use
  Company Number: US-ALEXION-A201001427

PATIENT
  Sex: Female

DRUGS (6)
  1. SOLIRIS [Suspect]
     Indication: PAROXYSMAL NOCTURNAL HAEMOGLOBINURIA
     Dosage: 900 MG, Q2W
     Route: 042
     Dates: start: 20100624
  2. CELEXA [Concomitant]
     Dosage: 40 MG, QD
     Route: 048
  3. FERROUS SULFATE TAB [Concomitant]
  4. PRENATAL VITAMINS [Concomitant]
  5. LOVENOX [Concomitant]
  6. PREDNISONE [Concomitant]
     Dosage: 40, BID

REACTIONS (5)
  - PREGNANCY [None]
  - BLOOD LACTATE DEHYDROGENASE INCREASED [None]
  - INTRA-UTERINE DEATH [None]
  - HAPTOGLOBIN DECREASED [None]
  - INTRAVASCULAR HAEMOLYSIS [None]
